FAERS Safety Report 9684570 (Version 1)
Quarter: 2013Q4

REPORT INFORMATION
  Report Type: Spontaneous
  Country: US (occurrence: US)
  Receive Date: 20131112
  Receipt Date: 20131112
  Transmission Date: 20140711
  Serious: No
  Sender: FDA-Public Use
  Company Number: US-AMGEN-USASP2013049672

PATIENT
  Age: 69 Year
  Sex: Female

DRUGS (2)
  1. ARANESP [Suspect]
     Indication: RED BLOOD CELL COUNT ABNORMAL
     Dosage: UNK
     Dates: start: 20130621
  2. ANTIHYPERTENSIVES [Concomitant]

REACTIONS (12)
  - Palpitations [Unknown]
  - Feeling abnormal [Unknown]
  - Pruritus [Unknown]
  - Renal pain [Unknown]
  - Sensation of heaviness [Unknown]
  - Asthenia [Unknown]
  - Mobility decreased [Unknown]
  - Enuresis [Unknown]
  - Red blood cell count decreased [Unknown]
  - Haemoglobin decreased [Unknown]
  - Haematocrit decreased [Unknown]
  - Dyspnoea [Unknown]
